FAERS Safety Report 23633487 (Version 1)
Quarter: 2024Q1

REPORT INFORMATION
  Report Type: Spontaneous
  Country: PL (occurrence: PL)
  Receive Date: 20240314
  Receipt Date: 20240314
  Transmission Date: 20240410
  Serious: Yes (Other)
  Sender: FDA-Public Use
  Company Number: None

PATIENT
  Age: 61 Year
  Sex: Male

DRUGS (2)
  1. SUNITINIB [Suspect]
     Active Substance: SUNITINIB
     Indication: Renal cancer
     Route: 048
     Dates: start: 201611, end: 201804
  2. SUNITINIB [Suspect]
     Active Substance: SUNITINIB
     Indication: Renal cancer
     Route: 048
     Dates: start: 201806

REACTIONS (3)
  - Gastrointestinal disorder [Unknown]
  - Asthenia [Unknown]
  - Abdominal pain upper [Unknown]
